FAERS Safety Report 7423599-X (Version None)
Quarter: 2011Q2

REPORT INFORMATION
  Report Type: 
  Country: None (occurrence: None)
  Receive Date: 20110419
  Receipt Date: 20110415
  Transmission Date: 20111010
  Serious: Yes (Death)
  Sender: FDA-Public Use
  Company Number: PHHY2011DE31616

PATIENT
  Sex: Female
  Weight: 64 kg

DRUGS (1)
  1. SANDOSTATIN [Suspect]

REACTIONS (1)
  - ACUTE HEPATIC FAILURE [None]
